FAERS Safety Report 10694453 (Version 2)
Quarter: 2015Q1

REPORT INFORMATION
  Report Type: Spontaneous
  Country: IT (occurrence: IT)
  Receive Date: 20150107
  Receipt Date: 20150107
  Transmission Date: 20150721
  Serious: Yes (Hospitalization)
  Sender: FDA-Public Use
  Company Number: IT-ROCHE-1498336

PATIENT
  Age: 73 Year
  Sex: Female
  Weight: 59 kg

DRUGS (4)
  1. LANSOX [Concomitant]
     Active Substance: LANSOPRAZOLE
     Route: 048
  2. SIVASTIN [Concomitant]
     Active Substance: SIMVASTATIN
     Route: 048
  3. MABTHERA [Suspect]
     Active Substance: RITUXIMAB
     Indication: NON-HODGKIN^S LYMPHOMA
     Route: 041
     Dates: start: 20121006, end: 20141024
  4. MYELOSTIM [Concomitant]
     Route: 058

REACTIONS (3)
  - Pyrexia [Recovering/Resolving]
  - Eyelid oedema [Recovering/Resolving]
  - Herpes zoster [Recovering/Resolving]

NARRATIVE: CASE EVENT DATE: 20141105
